FAERS Safety Report 15208034 (Version 1)
Quarter: 2018Q3

REPORT INFORMATION
  Report Type: Report from Study
  Country: US (occurrence: US)
  Receive Date: 20180727
  Receipt Date: 20180727
  Transmission Date: 20181010
  Serious: Yes (Other)
  Sender: FDA-Public Use
  Company Number: US-SA-2018SA135233

PATIENT
  Age: 54 Year
  Sex: Female

DRUGS (2)
  1. DUPILUMAB [Suspect]
     Active Substance: DUPILUMAB
     Indication: PRURIGO
     Dosage: 600 MG,1X
     Route: 058
     Dates: start: 20180413, end: 20180413
  2. DUPILUMAB [Suspect]
     Active Substance: DUPILUMAB
     Dosage: 300 MG, QOW
     Dates: start: 201805

REACTIONS (10)
  - Retinal tear [Not Recovered/Not Resolved]
  - Injection site pruritus [Not Recovered/Not Resolved]
  - Injection site erythema [Recovering/Resolving]
  - Eye pruritus [Unknown]
  - Injection site rash [Not Recovered/Not Resolved]
  - Injection site exfoliation [Not Recovered/Not Resolved]
  - Injection site vesicles [Not Recovered/Not Resolved]
  - Injection site pain [Not Recovered/Not Resolved]
  - Ocular hyperaemia [Unknown]
  - Dry eye [Unknown]

NARRATIVE: CASE EVENT DATE: 20180416
